FAERS Safety Report 9479195 (Version 1)
Quarter: 2013Q3

REPORT INFORMATION
  Report Type: Spontaneous
  Country: CA (occurrence: CA)
  Receive Date: 20130827
  Receipt Date: 20130827
  Transmission Date: 20140515
  Serious: Yes (Other)
  Sender: FDA-Public Use
  Company Number: CA-WATSON-2013-14580

PATIENT
  Age: 8 Year
  Sex: Male

DRUGS (6)
  1. SODIUM VALPROATE (UNKNOWN) [Suspect]
     Indication: EPILEPSY
     Dosage: 40 MG/KG, UNK
     Route: 065
  2. SODIUM VALPROATE (UNKNOWN) [Suspect]
     Dosage: UNK
     Route: 065
  3. SODIUM VALPROATE (UNKNOWN) [Suspect]
     Dosage: 50.8 UNK, UNK
     Route: 065
  4. DILANTIN                           /00017401/ [Concomitant]
     Indication: EPILEPSY
     Dosage: UNK
     Route: 065
  5. CARBAMAZEPINE [Concomitant]
     Indication: EPILEPSY
     Dosage: UNK
     Route: 065
  6. AMOXICILLIN [Concomitant]
     Indication: OTITIS MEDIA
     Dosage: UNK
     Route: 065

REACTIONS (3)
  - Pancreatitis [Recovered/Resolved]
  - Hypertension [Recovered/Resolved]
  - Blood creatinine increased [Recovered/Resolved]
